FAERS Safety Report 24136262 (Version 1)
Quarter: 2024Q3

REPORT INFORMATION
  Report Type: Spontaneous
  Country: DE (occurrence: DE)
  Receive Date: 20240725
  Receipt Date: 20240725
  Transmission Date: 20241016
  Serious: Yes (Hospitalization, Other)
  Sender: AUROBINDO
  Company Number: DE-EMA-DD-20240715-7482677-084326

PATIENT
  Age: 63 Year
  Sex: Male
  Weight: 65 kg

DRUGS (33)
  1. DIAZEPAM [Suspect]
     Active Substance: DIAZEPAM
     Indication: Restlessness
     Route: 048
     Dates: start: 19981107, end: 19981107
  2. PANTOPRAZOLE [Suspect]
     Active Substance: PANTOPRAZOLE
     Indication: Gastric ulcer
     Dosage: TAB 1
     Route: 048
     Dates: start: 19981107
  3. URAPIDIL [Suspect]
     Active Substance: URAPIDIL
     Indication: Angina pectoris
     Dosage: AMP 1
     Route: 042
     Dates: start: 19981107, end: 19981107
  4. ASPIRIN [Suspect]
     Active Substance: ASPIRIN
     Indication: Coronary artery disease
     Dosage: UNK
     Route: 048
  5. ALLOPURINOL [Suspect]
     Active Substance: ALLOPURINOL
     Indication: Hyperuricaemia
     Dosage: UNK
     Route: 048
     Dates: start: 19980925, end: 19981106
  6. AMOXICILLIN [Suspect]
     Active Substance: AMOXICILLIN
     Indication: Bronchitis
     Dosage: UNSPECIFIED
     Route: 048
     Dates: start: 19981107
  7. ATORVASTATIN [Suspect]
     Active Substance: ATORVASTATIN
     Indication: Hypercholesterolaemia
     Dosage: UNK
     Route: 048
     Dates: start: 19981023, end: 19981106
  8. FUROSEMIDE [Suspect]
     Active Substance: FUROSEMIDE
     Indication: Oedema
     Dosage: 2 DOSAGE FORM, ONCE A DAY
     Route: 048
     Dates: end: 19981106
  9. NITROGLYCERIN [Suspect]
     Active Substance: NITROGLYCERIN
     Indication: Angina pectoris
     Dosage: UNK
     Route: 042
     Dates: start: 19981107, end: 19981108
  10. MOLSIDOMINE [Concomitant]
     Active Substance: MOLSIDOMINE
     Indication: Coronary artery disease
     Dosage: UNK
     Route: 048
     Dates: end: 19981106
  11. NITROGLYCERIN [Suspect]
     Active Substance: NITROGLYCERIN
     Indication: Angina pectoris
     Dosage: UNSPECIFIED
     Route: 048
     Dates: start: 19981107, end: 19981107
  12. HEPARIN [Suspect]
     Active Substance: HEPARIN SODIUM
     Indication: Thrombosis
     Dosage: UNSPECIFIED
     Route: 042
     Dates: start: 19981107, end: 19981109
  13. ACETAMINOPHEN [Suspect]
     Active Substance: ACETAMINOPHEN
     Indication: Pyrexia
     Dosage: UNK
     Route: 054
     Dates: start: 19981108, end: 19981109
  14. ISOSORBIDE DINITRATE [Suspect]
     Active Substance: ISOSORBIDE DINITRATE
     Indication: Coronary artery disease
     Dosage: UNK
     Route: 048
     Dates: start: 19981108
  15. HEPARIN [Suspect]
     Active Substance: HEPARIN SODIUM
     Indication: Thrombosis
     Dosage: UNSPECIFIED
     Route: 058
     Dates: start: 19981107, end: 19981107
  16. METAMIZOLE SODIUM [Suspect]
     Active Substance: METAMIZOLE SODIUM
     Indication: Pain
     Dosage: DROP 20
     Route: 048
     Dates: start: 19981107, end: 19981107
  17. MOLSIDOMINE [Suspect]
     Active Substance: MOLSIDOMINE
     Indication: Coronary artery disease
     Dosage: TAB 1
     Route: 048
     Dates: start: 19981108
  18. METOCLOPRAMIDE [Suspect]
     Active Substance: METOCLOPRAMIDE
     Indication: Illness
     Dosage: AMP 1
     Route: 048
     Dates: end: 19981106
  19. ACETYLCYSTEINE [Suspect]
     Active Substance: ACETYLCYSTEINE
     Indication: Cough
     Dosage: DROPS 20
     Route: 048
     Dates: start: 19981109, end: 19981109
  20. FUROSEMIDE [Suspect]
     Active Substance: FUROSEMIDE
     Indication: Product used for unknown indication
     Dosage: UNSPECIFIED
     Route: 048
     Dates: start: 19981107
  21. FUROSEMIDE [Suspect]
     Active Substance: FUROSEMIDE
     Indication: Coronary artery insufficiency
     Dosage: UNK
     Route: 042
  22. NITROGLYCERIN [Suspect]
     Active Substance: NITROGLYCERIN
     Indication: Angina pectoris
     Dosage: UNSPECIFIED
     Route: 048
     Dates: start: 19981109
  23. ACETYLCYSTEINE [Suspect]
     Active Substance: ACETYLCYSTEINE
     Indication: Mucosal inflammation
     Dosage: TAB 1
     Route: 048
     Dates: start: 19981108
  24. FUROSEMIDE [Suspect]
     Active Substance: FUROSEMIDE
     Indication: Coronary artery insufficiency
     Dosage: UNK
     Route: 042
     Dates: start: 19981107, end: 19981107
  25. INSULIN HUMAN [Suspect]
     Active Substance: INSULIN HUMAN
     Indication: Diabetes mellitus
     Dosage: UNSPECIFIED
     Route: 042
     Dates: start: 19981107, end: 19981107
  26. MORPHINE [Suspect]
     Active Substance: MORPHINE
     Indication: Pain
     Dosage: UNK
     Route: 042
     Dates: start: 19981107, end: 19981107
  27. ASPIRIN DL-LYSINE [Suspect]
     Active Substance: ASPIRIN DL-LYSINE
     Indication: Angina pectoris
     Dosage: UNK
     Route: 042
     Dates: start: 19981107, end: 19981107
  28. METOCLOPRAMIDE [Suspect]
     Active Substance: METOCLOPRAMIDE
     Indication: Illness
     Dosage: AMP 1
     Route: 042
     Dates: start: 19981107, end: 19981107
  29. INSULIN NOS [Concomitant]
     Active Substance: INSULIN NOS
     Indication: Diabetes mellitus
     Dosage: UNK
     Route: 058
  30. CARVEDILOL [Concomitant]
     Active Substance: CARVEDILOL
     Indication: Hypertension
     Dosage: UNK
     Route: 048
  31. ISOSORBIDE MONONITRATE [Concomitant]
     Active Substance: ISOSORBIDE MONONITRATE
     Indication: Coronary artery disease
     Dosage: UNK
     Route: 048
     Dates: end: 19981106
  32. AQUAPHOR [Concomitant]
     Active Substance: PETROLATUM
     Indication: Hypertension
     Dosage: UNK
     Route: 048
     Dates: end: 19981106
  33. AQUAPHOR [Concomitant]
     Active Substance: PETROLATUM
     Indication: Product used for unknown indication
     Dosage: UNK
     Route: 048
     Dates: start: 19981108

REACTIONS (11)
  - Rash [Unknown]
  - Pyrexia [Unknown]
  - Blood creatinine increased [Unknown]
  - Oral mucosal eruption [Unknown]
  - Blood urea increased [Unknown]
  - Skin disorder [Unknown]
  - Pruritus [Unknown]
  - Leukocytosis [Unknown]
  - Ocular hyperaemia [Unknown]
  - Stevens-Johnson syndrome [Recovered/Resolved]
  - Erythema multiforme [Recovered/Resolved]

NARRATIVE: CASE EVENT DATE: 19981108
